FAERS Safety Report 17758082 (Version 1)
Quarter: 2020Q2

REPORT INFORMATION
  Report Type: Spontaneous
  Country: CH (occurrence: CH)
  Receive Date: 20200507
  Receipt Date: 20200507
  Transmission Date: 20200714
  Serious: Yes (Death)
  Sender: FDA-Public Use
  Company Number: CH-ELI_LILLY_AND_COMPANY-CH202005002089

PATIENT
  Sex: Male

DRUGS (4)
  1. ALIMTA [Suspect]
     Active Substance: PEMETREXED DISODIUM
     Dosage: 1 DOSAGE FORM, UNKNOWN
     Route: 042
     Dates: start: 20180927
  2. ALIMTA [Suspect]
     Active Substance: PEMETREXED DISODIUM
     Indication: PRODUCT USED FOR UNKNOWN INDICATION
     Dosage: 01 DOSAGE FORM, UNKNOWN
     Route: 065
     Dates: start: 20180822
  3. ALIMTA [Suspect]
     Active Substance: PEMETREXED DISODIUM
     Indication: PRODUCT USED FOR UNKNOWN INDICATION
     Dosage: 02 DOSAGE FORM, UNKNOWN
     Route: 065
     Dates: start: 20180822
  4. ALIMTA [Suspect]
     Active Substance: PEMETREXED DISODIUM
     Dosage: 01 DOSAGE FORM, UNKNOWN
     Route: 042
     Dates: start: 20180927

REACTIONS (1)
  - Death [Fatal]

NARRATIVE: CASE EVENT DATE: 2018
